FAERS Safety Report 5731491-1 (Version None)
Quarter: 2008Q2

REPORT INFORMATION
  Report Type: 
  Country: None (occurrence: None)
  Receive Date: 20080508
  Receipt Date: 20080505
  Transmission Date: 20081010
  Serious: Yes (Life-Threatening, Other)
  Sender: FDA-Public Use
  Company Number: PHEH2008US04332

PATIENT
  Age: 62 Year
  Sex: Female

DRUGS (1)
  1. ESTRADERM [Suspect]
     Indication: HORMONE REPLACEMENT THERAPY

REACTIONS (11)
  - ANXIETY [None]
  - CHILLS [None]
  - DEPRESSION [None]
  - DRY EYE [None]
  - HEADACHE [None]
  - HOT FLUSH [None]
  - IRRITABILITY [None]
  - LIBIDO DECREASED [None]
  - NERVOUSNESS [None]
  - PALPITATIONS [None]
  - SUICIDAL IDEATION [None]
